FAERS Safety Report 14505081 (Version 3)
Quarter: 2020Q1

REPORT INFORMATION
  Report Type: Spontaneous
  Country: ES (occurrence: ES)
  Receive Date: 20180208
  Receipt Date: 20200106
  Transmission Date: 20200409
  Serious: Yes (Death, Life-Threatening, Hospitalization, Other)
  Sender: FDA-Public Use
  Company Number: ES-AUROBINDO-AUR-APL-2018-005237

PATIENT
  Age: 42 Year
  Sex: Male

DRUGS (6)
  1. CITALOPRAM [Suspect]
     Active Substance: CITALOPRAM HYDROBROMIDE
     Indication: DEPRESSION
     Dosage: UNK
     Route: 065
  2. CITALOPRAM [Interacting]
     Active Substance: CITALOPRAM HYDROBROMIDE
     Indication: CELL DEATH
     Dosage: OVERDOSE WITH 480MG OF CITALOPRAM
     Route: 065
  3. CITALOPRAM [Interacting]
     Active Substance: CITALOPRAM HYDROBROMIDE
     Dosage: 480 MILLIGRAM, 1 TOTAL (VOLUNTARY INGESTION THREE HOURS BEFORE OF 480 MG OF CITALOPRAM)
     Route: 048
  4. TAURINE [Concomitant]
     Active Substance: TAURINE
     Indication: PRODUCT USED FOR UNKNOWN INDICATION
     Dosage: ONE OR TWO LITRES OF STIMULATING TAURINE-RICH DRINK (RED BULL?). ()
     Route: 065
  5. CITALOPRAM [Interacting]
     Active Substance: CITALOPRAM HYDROBROMIDE
     Dosage: 20 MILLIGRAM, ONCE A DAY
     Route: 048
  6. TRYPTOPHAN [Interacting]
     Active Substance: TRYPTOPHAN
     Indication: PRODUCT USED FOR UNKNOWN INDICATION
     Dosage: UNK
     Route: 065

REACTIONS (16)
  - Shock [Unknown]
  - Food interaction [Unknown]
  - Serotonin syndrome [Fatal]
  - Acute kidney injury [Unknown]
  - Hypoglycaemia [Unknown]
  - Multiple organ dysfunction syndrome [Unknown]
  - Toxicity to various agents [Unknown]
  - Rhabdomyolysis [Unknown]
  - Intentional overdose [Fatal]
  - Disseminated intravascular coagulation [Unknown]
  - Leukopenia [Unknown]
  - Suicide attempt [Fatal]
  - Acute respiratory failure [Unknown]
  - Lactic acidosis [Unknown]
  - Drug interaction [Unknown]
  - Cell death [Unknown]
